FAERS Safety Report 10336551 (Version 1)
Quarter: 2014Q3

REPORT INFORMATION
  Report Type: Spontaneous
  Country: US (occurrence: US)
  Receive Date: 20140723
  Receipt Date: 20140723
  Transmission Date: 20150326
  Serious: Yes (Hospitalization)
  Sender: FDA-Public Use
  Company Number: US-BRISTOL-MYERS SQUIBB COMPANY-20808846

PATIENT
  Age: 85 Year
  Sex: Female

DRUGS (3)
  1. WARFARIN SODIUM. [Suspect]
     Active Substance: WARFARIN SODIUM
     Dates: start: 1996
  2. COUMADIN [Suspect]
     Active Substance: WARFARIN SODIUM
     Dates: start: 1996
  3. HEPARIN [Suspect]
     Active Substance: HEPARIN SODIUM
     Dates: start: 1996

REACTIONS (1)
  - Cerebral haemorrhage [Unknown]

NARRATIVE: CASE EVENT DATE: 1996
